FAERS Safety Report 15297543 (Version 6)
Quarter: 2020Q4

REPORT INFORMATION
  Report Type: Report from Study
  Country: DE (occurrence: DE)
  Receive Date: 20180820
  Receipt Date: 20201017
  Transmission Date: 20210113
  Serious: Yes (Other)
  Sender: FDA-Public Use
  Company Number: PHHY2018DE055527

PATIENT
  Age: 37 Year
  Sex: Female
  Weight: 70 kg

DRUGS (4)
  1. COSENTYX [Suspect]
     Active Substance: SECUKINUMAB
     Dosage: UNK
     Route: 058
     Dates: start: 20171115
  2. COSENTYX [Suspect]
     Active Substance: SECUKINUMAB
     Dosage: 300 MG, UNKNOWN
     Route: 065
     Dates: start: 20160322, end: 20180115
  3. COSENTYX [Suspect]
     Active Substance: SECUKINUMAB
     Dosage: UNK
     Route: 058
     Dates: start: 20180118, end: 201803
  4. COSENTYX [Suspect]
     Active Substance: SECUKINUMAB
     Indication: PSORIASIS
     Dosage: 300 MG, UNKNOWN
     Route: 065
     Dates: start: 20160224, end: 20160321

REACTIONS (5)
  - Haemorrhage [Unknown]
  - Psychotic disorder [Unknown]
  - Abortion [Recovered/Resolved]
  - Maternal exposure during pregnancy [Unknown]
  - Skin disorder [Unknown]

NARRATIVE: CASE EVENT DATE: 20180207
